FAERS Safety Report 8488901-9 (Version None)
Quarter: 2012Q3

REPORT INFORMATION
  Report Type: 
  Country: None (occurrence: None)
  Receive Date: 20120705
  Receipt Date: 20120625
  Transmission Date: 20120928
  Serious: Yes (Hospitalization, Other)
  Sender: FDA-Public Use
  Company Number: US-ROCHE-1081520

PATIENT
  Age: 84 Year
  Sex: Female

DRUGS (2)
  1. CELLCEPT [Suspect]
     Indication: TEMPORAL ARTERITIS
  2. CELLCEPT [Suspect]
     Indication: POLYMYALGIA RHEUMATICA
     Route: 065

REACTIONS (4)
  - PROGRESSIVE MULTIFOCAL LEUKOENCEPHALOPATHY [None]
  - SURGERY [None]
  - SPEECH DISORDER [None]
  - MUSCULAR WEAKNESS [None]
